FAERS Safety Report 8615353-8 (Version None)
Quarter: 2012Q3

REPORT INFORMATION
  Report Type: 
  Country: None (occurrence: None)
  Receive Date: 20120823
  Receipt Date: 20120817
  Transmission Date: 20120928
  Serious: Yes (Other)
  Sender: FDA-Public Use
  Company Number: US-INCYTE CORPORATION-2012IN001565

PATIENT
  Sex: Female

DRUGS (9)
  1. JAKAFI [Suspect]
     Indication: MYELOFIBROSIS
     Dosage: 10 MG, BID
     Route: 048
     Dates: start: 20120701, end: 20120101
  2. ASPIRIN [Concomitant]
  3. JAKAFI [Suspect]
     Dosage: 10 MG, QD
     Route: 048
     Dates: start: 20120801, end: 20120801
  4. JAKAFI [Suspect]
     Dosage: 5 MG, QD
     Route: 048
     Dates: start: 20120801
  5. ULORIC [Concomitant]
  6. LASIX [Concomitant]
  7. COLCHICINE [Concomitant]
  8. WARFARIN SODIUM [Concomitant]
  9. SPIRONOLACTONE [Concomitant]

REACTIONS (5)
  - HEPATIC ENZYME INCREASED [None]
  - BLOOD BILIRUBIN INCREASED [None]
  - CHROMATURIA [None]
  - FATIGUE [None]
  - URINE ABNORMALITY [None]
